FAERS Safety Report 8616647-2 (Version None)
Quarter: 2012Q3

REPORT INFORMATION
  Report Type: 
  Country: None (occurrence: None)
  Receive Date: 20120823
  Receipt Date: 20120802
  Transmission Date: 20120928
  Serious: No
  Sender: FDA-Public Use
  Company Number: US-009507513-1208USA001633

PATIENT

DRUGS (5)
  1. JANUMET XR [Suspect]
     Indication: DIABETES MELLITUS
     Route: 048
  2. ZETIA [Suspect]
  3. PEPCID [Concomitant]
  4. TOPROL-XL [Concomitant]
  5. SPIRONOLACTONE [Concomitant]

REACTIONS (2)
  - DIZZINESS [None]
  - BLOOD GLUCOSE FLUCTUATION [None]
